FAERS Safety Report 13495300 (Version 4)
Quarter: 2017Q3

REPORT INFORMATION
  Report Type: Spontaneous
  Country: US (occurrence: US)
  Receive Date: 20170428
  Receipt Date: 20170712
  Transmission Date: 20171127
  Serious: Yes (Other)
  Sender: FDA-Public Use
  Company Number: US-PFIZER INC-2017187608

PATIENT
  Age: 44 Year
  Sex: Female

DRUGS (15)
  1. VALIUM [Interacting]
     Active Substance: DIAZEPAM
     Indication: ANXIETY
     Dosage: 10 MG, 4X/DAY
     Route: 048
  2. NORCO [Interacting]
     Active Substance: ACETAMINOPHEN\HYDROCODONE BITARTRATE
     Indication: PAIN
     Dosage: 2 DF, 4X/DAY, ^[HYDROCODONE BITARTRATE 10 MG]/[PARACETAMOL 325 MG]^
     Route: 048
  3. GABAPENTIN. [Interacting]
     Active Substance: GABAPENTIN
     Dosage: 75 MG, 2X/DAY
  4. SOMA [Interacting]
     Active Substance: CARISOPRODOL
     Dosage: 1-3 X DAILY 350MG
     Route: 048
  5. NORCO [Interacting]
     Active Substance: ACETAMINOPHEN\HYDROCODONE BITARTRATE
     Dosage: 2-4 X DAILY 10MG
  6. MORPHINE SULFATE. [Interacting]
     Active Substance: MORPHINE SULFATE
     Indication: PAIN
     Dosage: 60 MG, 3X/DAY, (60MG, ONE TABLET THREE TIMES A DAY BY MOUTH) (3X DAILY)
     Route: 048
  7. NEURONTIN [Suspect]
     Active Substance: GABAPENTIN
     Dosage: UNK
  8. VALIUM [Interacting]
     Active Substance: DIAZEPAM
     Indication: STRESS
     Dosage: 1-4X DAILY 10MG
     Route: 048
  9. MORPHINE SULFATE. [Interacting]
     Active Substance: MORPHINE SULFATE
     Indication: SPINAL CORD OPERATION
  10. DOXEPIN [Concomitant]
     Active Substance: DOXEPIN
     Dosage: 1 DF, DAILY
  11. SOMA [Interacting]
     Active Substance: CARISOPRODOL
     Indication: MUSCLE SPASMS
     Dosage: 350 MG, 3X/DAY
     Route: 048
  12. AMBIEN [Interacting]
     Active Substance: ZOLPIDEM TARTRATE
     Dosage: 10 MG, DAILY
  13. MELOXICAM. [Concomitant]
     Active Substance: MELOXICAM
     Dosage: 1 DF, AS NEEDED (1 DAILY)
  14. GABAPENTIN. [Suspect]
     Active Substance: GABAPENTIN
     Indication: NERVE INJURY
     Dosage: 150 MG, 3X/DAY
  15. FIORICET [Concomitant]
     Active Substance: ACETAMINOPHEN\BUTALBITAL\CAFFEINE
     Dosage: 2 X DAILY OR EVERY 6 HOURS

REACTIONS (7)
  - Vision blurred [Unknown]
  - Dysarthria [Unknown]
  - Road traffic accident [Unknown]
  - Somnolence [Unknown]
  - Product use in unapproved indication [Unknown]
  - Feeling abnormal [Recovered/Resolved]
  - Drug interaction [Recovered/Resolved]
